FAERS Safety Report 4555612-1 (Version None)
Quarter: 2005Q1

REPORT INFORMATION
  Report Type: 
  Country: None (occurrence: None)
  Receive Date: 20050118
  Receipt Date: 20050118
  Transmission Date: 20050727
  Serious: Yes (Other)
  Sender: FDA-Public Use
  Company Number: None

PATIENT
  Age: 43 Year
  Sex: Female
  Weight: 94.3482 kg

DRUGS (2)
  1. CYCLOBENZAPRINE HCL [Suspect]
     Indication: FIBROMYALGIA
     Dosage: 1 TAB  AS NEEDED ORAL
     Route: 048
     Dates: start: 19870101, end: 20040421
  2. CYCLOBENZAPRINE HCL [Suspect]
     Indication: TEMPOROMANDIBULAR JOINT SYNDROME
     Dosage: 1 TAB  AS NEEDED ORAL
     Route: 048
     Dates: start: 19870101, end: 20040421

REACTIONS (2)
  - DRUG INEFFECTIVE [None]
  - PHARMACEUTICAL PRODUCT COMPLAINT [None]
